FAERS Safety Report 11607887 (Version 1)
Quarter: 2015Q4

REPORT INFORMATION
  Report Type: Spontaneous
  Country: LT (occurrence: LT)
  Receive Date: 20151007
  Receipt Date: 20151007
  Transmission Date: 20160304
  Serious: Yes (Other)
  Sender: FDA-Public Use
  Company Number: LT-BAYER-2015-418781

PATIENT
  Age: 47 Year
  Sex: Female

DRUGS (3)
  1. YARINA [Suspect]
     Active Substance: DROSPIRENONE\ETHINYL ESTRADIOL
     Dosage: UNK
     Route: 048
  2. DUPHASTON [Concomitant]
     Active Substance: DYDROGESTERONE
     Route: 048
  3. MIRENA [Suspect]
     Active Substance: LEVONORGESTREL
     Indication: GENITAL HAEMORRHAGE
     Dosage: 20 MCG/24HR, CONT
     Route: 015
     Dates: start: 2013

REACTIONS (4)
  - Haemorrhagic anaemia [None]
  - Menstruation irregular [None]
  - Off label use [None]
  - Genital haemorrhage [None]
